FAERS Safety Report 18208913 (Version 5)
Quarter: 2020Q4

REPORT INFORMATION
  Report Type: Spontaneous
  Country: CA (occurrence: CA)
  Receive Date: 20200828
  Receipt Date: 20201019
  Transmission Date: 20210113
  Serious: Yes (Other)
  Sender: FDA-Public Use
  Company Number: CA-PFIZER INC-2020262753

PATIENT
  Age: 58 Year
  Sex: Male

DRUGS (7)
  1. ZIRABEV [Suspect]
     Active Substance: BEVACIZUMAB-BVZR
     Dosage: 1600 MG, EVERY 3 WEEKS
     Route: 042
     Dates: start: 20200806
  2. ZIRABEV [Suspect]
     Active Substance: BEVACIZUMAB-BVZR
     Dosage: 400 MG
     Route: 042
     Dates: start: 20200715
  3. ZIRABEV [Suspect]
     Active Substance: BEVACIZUMAB-BVZR
     Dosage: 1600 MG, EVERY 3 WEEKS
     Route: 042
     Dates: start: 20200916, end: 20201013
  4. DEXAMETHASONE. [Concomitant]
     Active Substance: DEXAMETHASONE
     Dosage: 3 MG/KG
  5. ZIRABEV [Suspect]
     Active Substance: BEVACIZUMAB-BVZR
     Dosage: 1600 MG, EVERY 3 WEEKS
     Route: 042
     Dates: start: 20200826
  6. ZIRABEV [Suspect]
     Active Substance: BEVACIZUMAB-BVZR
     Dosage: 1600 MG, EVERY 3 WEEKS
     Route: 042
     Dates: start: 20200826
  7. ZIRABEV [Suspect]
     Active Substance: BEVACIZUMAB-BVZR
     Indication: GLIOBLASTOMA
     Dosage: 1200 MG, EVERY 3 WEEKS
     Route: 042
     Dates: start: 20200715

REACTIONS (26)
  - Alanine aminotransferase increased [Unknown]
  - Blood creatinine decreased [Unknown]
  - Red blood cell count decreased [Unknown]
  - Lymphocyte count decreased [Unknown]
  - White blood cells urine positive [Unknown]
  - Mean cell volume increased [Unknown]
  - Blood urine present [Unknown]
  - Blood glucose increased [Unknown]
  - Blood alkaline phosphatase increased [Unknown]
  - Red blood cells urine positive [Unknown]
  - Body temperature decreased [Unknown]
  - Myalgia [Not Recovered/Not Resolved]
  - Blood albumin decreased [Unknown]
  - Glucose urine present [Unknown]
  - Urine ketone body present [Unknown]
  - Intentional product use issue [Unknown]
  - Aspartate aminotransferase increased [Unknown]
  - Malaise [Not Recovered/Not Resolved]
  - Gait disturbance [Not Recovered/Not Resolved]
  - Neoplasm progression [Unknown]
  - Urinary tract infection fungal [Unknown]
  - Off label use [Unknown]
  - Blood lactic acid increased [Unknown]
  - Gamma-glutamyltransferase increased [Unknown]
  - Mean cell haemoglobin increased [Unknown]
  - Platelet count decreased [Unknown]

NARRATIVE: CASE EVENT DATE: 20200820
